FAERS Safety Report 9203869 (Version 1)
Quarter: 2013Q2

REPORT INFORMATION
  Report Type: Spontaneous
  Country: US (occurrence: US)
  Receive Date: 20130402
  Receipt Date: 20130402
  Transmission Date: 20140414
  Serious: Yes (Other)
  Sender: FDA-Public Use
  Company Number: US-PFIZER INC-2013103200

PATIENT
  Sex: Male

DRUGS (12)
  1. LIPITOR [Suspect]
     Indication: BLOOD CHOLESTEROL INCREASED
     Dosage: 20 MG, 1X/DAY
  2. COUMADIN [Concomitant]
     Indication: ATRIAL FIBRILLATION
     Dosage: UNK
  3. COUMADIN [Concomitant]
     Indication: ANTICOAGULANT THERAPY
  4. FLOMAX [Concomitant]
     Indication: PROSTATIC DISORDER
     Dosage: UNK
  5. AVINZA [Concomitant]
     Dosage: UNK
  6. FUROSEMIDE [Concomitant]
     Indication: DIURETIC THERAPY
     Dosage: UNK
  7. PRIMIDONE [Concomitant]
     Dosage: UNK
  8. ATENOLOL [Concomitant]
     Indication: CARDIAC DISORDER
     Dosage: UNK
  9. TYLENOL [Concomitant]
     Indication: PAIN
     Dosage: UNK
  10. VITAMIN D [Concomitant]
     Dosage: UNK
  11. POTASSIUM [Concomitant]
     Dosage: UNK
  12. ALBUTEROL [Concomitant]
     Indication: DYSPNOEA
     Dosage: UNK

REACTIONS (1)
  - Dementia [Not Recovered/Not Resolved]
